FAERS Safety Report 7512586 (Version 2)
Quarter: 2020Q1

REPORT INFORMATION
  Report Type: Spontaneous
  Country: DE (occurrence: DE)
  Receive Date: 20100730
  Receipt Date: 20200331
  Transmission Date: 20200409
  Serious: Yes (Hospitalization, Other)
  Sender: FDA-Public Use
  Company Number: DE-B.I. PHARMACEUTICALS,INC./RIDGEFIELD-2010-DE-03927DE

PATIENT
  Sex: Male
  Weight: 112 kg

DRUGS (28)
  1. CABERGOLINE. [Suspect]
     Active Substance: CABERGOLINE
     Indication: RESTLESS LEGS SYNDROME
     Dosage: 4 MG, QD
     Route: 048
     Dates: start: 200308, end: 200606
  2. ZOCOR [Suspect]
     Active Substance: SIMVASTATIN
     Indication: HYPERLIPIDAEMIA
     Dosage: 20 MG, BID
     Route: 048
  3. IBUPROFEN. [Concomitant]
     Active Substance: IBUPROFEN
     Indication: PRODUCT USED FOR UNKNOWN INDICATION
     Route: 065
  4. DULOXETINE HYDROCHLORIDE. [Concomitant]
     Active Substance: DULOXETINE HYDROCHLORIDE
     Indication: PRODUCT USED FOR UNKNOWN INDICATION
     Dosage: 90 MG, QD
     Route: 065
     Dates: start: 2009
  5. FERRO SANOL [Concomitant]
     Active Substance: FERROUS GLYCINE SULFATE
     Indication: PRODUCT USED FOR UNKNOWN INDICATION
     Dosage: 20 UNK, QD
     Route: 048
  6. SIFROL [Suspect]
     Active Substance: PRAMIPEXOLE
     Indication: PRODUCT USED FOR UNKNOWN INDICATION
     Route: 065
     Dates: end: 2003
  7. CABERGOLINE. [Suspect]
     Active Substance: CABERGOLINE
     Dosage: 3 MG, QD
     Route: 048
     Dates: start: 200606
  8. PANTOZOL [Concomitant]
     Active Substance: PANTOPRAZOLE SODIUM
     Indication: PRODUCT USED FOR UNKNOWN INDICATION
     Dosage: 40 MG, QD
     Route: 065
  9. TREVILOR RETARD [Concomitant]
     Active Substance: VENLAFAXINE HYDROCHLORIDE
     Indication: PRODUCT USED FOR UNKNOWN INDICATION
     Route: 065
  10. CABERGOLINE. [Suspect]
     Active Substance: CABERGOLINE
     Dosage: 1 MG, QD
     Route: 048
     Dates: start: 200906
  11. TRAMAL [Concomitant]
     Active Substance: TRAMADOL
     Indication: PRODUCT USED FOR UNKNOWN INDICATION
     Route: 065
     Dates: start: 200904, end: 200905
  12. ZOCOR [Suspect]
     Active Substance: SIMVASTATIN
     Dosage: 20 MG, QD
     Route: 048
  13. MORPHINE [Concomitant]
     Active Substance: MORPHINE
     Indication: PRODUCT USED FOR UNKNOWN INDICATION
     Route: 065
     Dates: start: 2007
  14. DELIX PLUS [Concomitant]
     Active Substance: HYDROCHLOROTHIAZIDE\RAMIPRIL
     Indication: PRODUCT USED FOR UNKNOWN INDICATION
     Dosage: 1 DF, QD
     Route: 065
  15. NACOM RETARD [Concomitant]
     Active Substance: CARBIDOPA\LEVODOPA
     Indication: PRODUCT USED FOR UNKNOWN INDICATION
     Route: 048
     Dates: start: 20030731, end: 20030822
  16. LORMETAZEPAM [Concomitant]
     Active Substance: LORMETAZEPAM
     Dosage: 2 MG, QD
     Dates: end: 200308
  17. LYRICA [Concomitant]
     Active Substance: PREGABALIN
     Indication: PRODUCT USED FOR UNKNOWN INDICATION
     Route: 065
  18. OXYGESIC [Concomitant]
     Active Substance: OXYCODONE
     Indication: PRODUCT USED FOR UNKNOWN INDICATION
     Route: 065
     Dates: start: 200904, end: 200905
  19. NACOM RETARD [Concomitant]
     Active Substance: CARBIDOPA\LEVODOPA
     Route: 048
     Dates: start: 1993, end: 2000
  20. ACETYLSALICYLIC ACID [Concomitant]
     Active Substance: ASPIRIN
     Indication: PRODUCT USED FOR UNKNOWN INDICATION
     Dosage: 100 MG, QD
     Route: 065
  21. MADOPAR [Concomitant]
     Active Substance: BENSERAZIDE HYDROCHLORIDE\LEVODOPA
     Indication: PRODUCT USED FOR UNKNOWN INDICATION
     Dosage: 50 MG, TID
     Route: 065
     Dates: start: 20030731, end: 20030822
  22. SEROQUEL [Concomitant]
     Active Substance: QUETIAPINE FUMARATE
     Indication: PRODUCT USED FOR UNKNOWN INDICATION
     Route: 065
  23. LORMETAZEPAM [Concomitant]
     Active Substance: LORMETAZEPAM
     Indication: PRODUCT USED FOR UNKNOWN INDICATION
     Dosage: 1 MG, QD
     Route: 065
     Dates: start: 200308
  24. ALLOPURINOL. [Concomitant]
     Active Substance: ALLOPURINOL
     Indication: PRODUCT USED FOR UNKNOWN INDICATION
     Dosage: 200 MG, QD
     Route: 065
  25. CAPTOPRIL. [Concomitant]
     Active Substance: CAPTOPRIL
     Indication: PRODUCT USED FOR UNKNOWN INDICATION
     Route: 065
  26. CABERGOLINE. [Suspect]
     Active Substance: CABERGOLINE
     Dosage: 2 MG, QD
     Route: 048
     Dates: end: 200906
  27. TOREM [TORASEMIDE] [Concomitant]
     Active Substance: TORSEMIDE
     Indication: PRODUCT USED FOR UNKNOWN INDICATION
     Dosage: 10 MG, BID
     Route: 065
  28. ZOPICLONE [Concomitant]
     Active Substance: ZOPICLONE
     Indication: PRODUCT USED FOR UNKNOWN INDICATION
     Dosage: 7.5 MG, QD
     Route: 065

REACTIONS (56)
  - Cerebrovascular accident [Recovered/Resolved with Sequelae]
  - Myositis [Unknown]
  - Insomnia [Recovering/Resolving]
  - Oedema peripheral [Unknown]
  - Costochondritis [Unknown]
  - Cardiomegaly [Unknown]
  - Aortic valve incompetence [Not Recovered/Not Resolved]
  - Aortic valve incompetence [Not Recovered/Not Resolved]
  - Impulse-control disorder [Not Recovered/Not Resolved]
  - Suicidal ideation [Unknown]
  - Intentional self-injury [Unknown]
  - Hepatic steatosis [Not Recovered/Not Resolved]
  - Somnolence [Unknown]
  - Back pain [Unknown]
  - Intentional overdose [Recovered/Resolved]
  - Drug abuse [Unknown]
  - Sleep apnoea syndrome [Unknown]
  - Bilirubinuria [Unknown]
  - Dyspnoea [Recovered/Resolved]
  - Gynaecomastia [Unknown]
  - Myocarditis [Not Recovered/Not Resolved]
  - Fluid retention [Recovered/Resolved]
  - Condition aggravated [Unknown]
  - Restless legs syndrome [Recovering/Resolving]
  - Suicide attempt [Unknown]
  - Substance dependence [Not Recovered/Not Resolved]
  - Dyspnoea [Recovered/Resolved]
  - Obesity [Not Recovered/Not Resolved]
  - Arthropathy [Unknown]
  - Blood creatine phosphokinase increased [Unknown]
  - Pulmonary hypertension [Not Recovered/Not Resolved]
  - Oedema peripheral [Recovered/Resolved]
  - Aortic valve disease [Unknown]
  - Suicide attempt [Unknown]
  - Renal cyst [Not Recovered/Not Resolved]
  - Chest pain [Unknown]
  - Logorrhoea [Unknown]
  - Blood creatine phosphokinase increased [Unknown]
  - Left ventricular hypertrophy [Recovering/Resolving]
  - Alcoholism [Unknown]
  - Hyperphagia [Unknown]
  - Renal cyst [Unknown]
  - Pain in extremity [Unknown]
  - Personality disorder [Unknown]
  - Gambling disorder [Unknown]
  - Serum ferritin decreased [Unknown]
  - Umbilical hernia [Unknown]
  - Bone disorder [Unknown]
  - Hepatosplenomegaly [Unknown]
  - Road traffic accident [Unknown]
  - Hepatic cirrhosis [Not Recovered/Not Resolved]
  - Obesity [Not Recovered/Not Resolved]
  - Periarthritis [Unknown]
  - Left ventricular hypertrophy [Unknown]
  - Hyperphagia [Not Recovered/Not Resolved]
  - Bundle branch block left [Unknown]

NARRATIVE: CASE EVENT DATE: 2003
